APPROVED DRUG PRODUCT: SEROPHENE
Active Ingredient: CLOMIPHENE CITRATE
Strength: 50MG
Dosage Form/Route: TABLET;ORAL
Application: N018361 | Product #001
Applicant: EMD SERONO INC
Approved: Mar 22, 1982 | RLD: No | RS: No | Type: DISCN